FAERS Safety Report 4663677-1 (Version None)
Quarter: 2005Q2

REPORT INFORMATION
  Report Type: 
  Country: None (occurrence: None)
  Receive Date: 20050517
  Receipt Date: 20050505
  Transmission Date: 20051028
  Serious: Yes (Hospitalization)
  Sender: FDA-Public Use
  Company Number: 05-05-0811

PATIENT
  Age: 51 Year
  Sex: Female

DRUGS (3)
  1. CLOZAPINE [Suspect]
     Indication: MANIA
     Dosage: 12.5-200MG QD
  2. CLOZAPINE [Suspect]
     Indication: PARANOIA
     Dosage: 12.5-200MG QD
  3. MIRTAZAPINE [Concomitant]

REACTIONS (7)
  - AKINESIA [None]
  - APHASIA [None]
  - DRUG TOXICITY [None]
  - ESCHERICHIA URINARY TRACT INFECTION [None]
  - GAIT DISTURBANCE [None]
  - INCOHERENT [None]
  - REFUSAL OF TREATMENT BY PATIENT [None]
